FAERS Safety Report 5929022-6 (Version None)
Quarter: 2008Q4

REPORT INFORMATION
  Report Type: 
  Country: None (occurrence: None)
  Receive Date: 20081024
  Receipt Date: 20081016
  Transmission Date: 20090506
  Serious: Yes (Other)
  Sender: FDA-Public Use
  Company Number: ES-JNJFOC-20081004964

PATIENT
  Age: 11 Year
  Sex: Male
  Weight: 48 kg

DRUGS (5)
  1. CONCERTA [Suspect]
     Route: 048
  2. CONCERTA [Suspect]
     Route: 048
  3. CONCERTA [Suspect]
     Indication: ATTENTION DEFICIT/HYPERACTIVITY DISORDER
     Route: 048
  4. RISPERDAL [Suspect]
     Indication: FRAGILE X SYNDROME
     Route: 048
  5. RUBIFEN [Concomitant]
     Indication: ATTENTION DEFICIT/HYPERACTIVITY DISORDER
     Route: 048

REACTIONS (2)
  - EPISTAXIS [None]
  - VASOMOTOR RHINITIS [None]
